FAERS Safety Report 12428981 (Version 2)
Quarter: 2016Q3

REPORT INFORMATION
  Report Type: Report from Study
  Country: US (occurrence: US)
  Receive Date: 20160602
  Receipt Date: 20160721
  Transmission Date: 20161109
  Serious: Yes (Other)
  Sender: FDA-Public Use
  Company Number: US-SA-2016SA101637

PATIENT
  Age: 34 Year
  Sex: Female

DRUGS (3)
  1. LEMTRADA [Suspect]
     Active Substance: ALEMTUZUMAB
     Indication: MULTIPLE SCLEROSIS
     Route: 041
     Dates: start: 20160224, end: 20160226
  2. PROVIGIL [Concomitant]
     Active Substance: MODAFINIL
     Indication: FATIGUE
  3. ACYCLOVIR. [Concomitant]
     Active Substance: ACYCLOVIR

REACTIONS (5)
  - Femur fracture [Not Recovered/Not Resolved]
  - Lower limb fracture [Not Recovered/Not Resolved]
  - Joint dislocation [Not Recovered/Not Resolved]
  - Ligament sprain [Unknown]
  - Ligament rupture [Not Recovered/Not Resolved]

NARRATIVE: CASE EVENT DATE: 20160425
